FAERS Safety Report 7509380-1 (Version None)
Quarter: 2011Q2

REPORT INFORMATION
  Report Type: 
  Country: None (occurrence: None)
  Receive Date: 20110527
  Receipt Date: 20110427
  Transmission Date: 20111010
  Serious: Yes (Other)
  Sender: FDA-Public Use
  Company Number: AU-BAYER-2011-037088

PATIENT
  Age: 56 Year

DRUGS (2)
  1. NAPROXEN SODIUM [Suspect]
     Dosage: 1 G, ONCE
     Dates: start: 20110207, end: 20110207
  2. VERAPAMIL [Suspect]
     Dosage: 180 MG, ONCE

REACTIONS (1)
  - ANGIOEDEMA [None]
